FAERS Safety Report 5497485-9 (Version None)
Quarter: 2007Q4

REPORT INFORMATION
  Report Type: 
  Country: None (occurrence: None)
  Receive Date: 20071025
  Receipt Date: 20061121
  Transmission Date: 20080405
  Serious: No
  Sender: FDA-Public Use
  Company Number: A0628324A

PATIENT
  Age: 45 Year
  Sex: Female

DRUGS (10)
  1. ADVAIR DISKUS 100/50 [Suspect]
     Indication: ASTHMA
     Dosage: 1PUFF TWICE PER DAY
     Route: 055
     Dates: start: 20040101
  2. THEOPHYLLINE [Concomitant]
  3. ALBUTEROL [Concomitant]
  4. WELLBUTRIN XL [Concomitant]
     Route: 048
  5. CYMBALTA [Concomitant]
  6. BUSPAR [Concomitant]
  7. CLONAZEPAM [Concomitant]
  8. CYCLOBENZAPRINE HCL [Concomitant]
  9. HYDROCHLOROTHIAZIDE [Concomitant]
  10. METHOCARBAMOL [Concomitant]

REACTIONS (1)
  - DYSPHONIA [None]
